FAERS Safety Report 7343765-1 (Version None)
Quarter: 2011Q1

REPORT INFORMATION
  Report Type: 
  Country: None (occurrence: None)
  Receive Date: 20110310
  Receipt Date: 20110302
  Transmission Date: 20110831
  Serious: Yes (Other)
  Sender: FDA-Public Use
  Company Number: US-AMGEN-USASP2011012051

PATIENT
  Age: 42 Year
  Sex: Male

DRUGS (1)
  1. ENBREL [Suspect]
     Indication: RHEUMATOID ARTHRITIS
     Dosage: 50 MG, QWK
     Dates: start: 20080101

REACTIONS (6)
  - ARTHRALGIA [None]
  - VISUAL IMPAIRMENT [None]
  - EYELID OEDEMA [None]
  - OEDEMA PERIPHERAL [None]
  - OCULAR HYPERAEMIA [None]
  - JOINT SWELLING [None]
